FAERS Safety Report 14742260 (Version 1)
Quarter: 2018Q2

REPORT INFORMATION
  Report Type: Spontaneous
  Country: CH (occurrence: CH)
  Receive Date: 20180410
  Receipt Date: 20180410
  Transmission Date: 20180711
  Serious: Yes (Other)
  Sender: FDA-Public Use
  Company Number: CH-BAYER-2018-064022

PATIENT
  Age: 64 Year
  Sex: Female

DRUGS (2)
  1. GADOBUTROL. [Suspect]
     Active Substance: GADOBUTROL
     Indication: NUCLEAR MAGNETIC RESONANCE IMAGING BRAIN
  2. GADOBUTROL. [Suspect]
     Active Substance: GADOBUTROL
     Indication: OSTEOMYELITIS
     Dosage: 12 ML, ONCE

REACTIONS (5)
  - Contrast media allergy [Recovered/Resolved]
  - Arrhythmia [Recovered/Resolved]
  - Rash [Recovered/Resolved]
  - Palpitations [Recovered/Resolved]
  - Hypertension [Recovered/Resolved]
